FAERS Safety Report 19105049 (Version 5)
Quarter: 2021Q2

REPORT INFORMATION
  Report Type: Spontaneous
  Country: IT (occurrence: IT)
  Receive Date: 20210408
  Receipt Date: 20210520
  Transmission Date: 20210717
  Serious: Yes (Hospitalization, Other)
  Sender: FDA-Public Use
  Company Number: IT-AUROBINDO-AUR-APL-2021-014282

PATIENT
  Age: 93 Year
  Sex: Female

DRUGS (7)
  1. ISOPRENALINE [Concomitant]
     Active Substance: ISOPROTERENOL HYDROCHLORIDE
     Indication: BRADYCARDIA
     Dosage: UNK
     Route: 041
  2. AZITHROMYCIN ANHYDROUS. [Suspect]
     Active Substance: AZITHROMYCIN ANHYDROUS
     Indication: ERYSIPELAS
     Dosage: UNK
     Route: 065
  3. WARFARIN [Interacting]
     Active Substance: WARFARIN
     Indication: ATRIAL FIBRILLATION
     Dosage: 17.5 MILLIGRAM, EVERY WEEK
     Route: 065
  4. WARFARIN [Interacting]
     Active Substance: WARFARIN
     Indication: CARDIAC FAILURE
     Dosage: 10 MILLIGRAM, EVERY WEEK, DOSE REDUCED
     Route: 065
  5. CLARITHROMYCIN. [Interacting]
     Active Substance: CLARITHROMYCIN
     Indication: ERYSIPELAS
     Dosage: UNK
     Route: 065
  6. WARFARIN [Interacting]
     Active Substance: WARFARIN
     Indication: ANTICOAGULANT THERAPY
     Dosage: 16.25 MILLIGRAM, EVERY WEEK
     Route: 065
  7. FUROSEMIDE. [Concomitant]
     Active Substance: FUROSEMIDE
     Indication: CARDIAC FAILURE
     Dosage: UNK
     Route: 065

REACTIONS (8)
  - International normalised ratio increased [Recovered/Resolved]
  - Labelled drug-drug interaction issue [Recovered/Resolved]
  - Oedema peripheral [Unknown]
  - Product use issue [Unknown]
  - Bradycardia [Unknown]
  - Drug interaction [Recovered/Resolved]
  - Oliguria [Unknown]
  - Dyspnoea [Unknown]
